FAERS Safety Report 6480929-3 (Version None)
Quarter: 2009Q4

REPORT INFORMATION
  Report Type: 
  Country: None (occurrence: None)
  Receive Date: 20091208
  Receipt Date: 20091130
  Transmission Date: 20100525
  Serious: Yes (Hospitalization, Other)
  Sender: FDA-Public Use
  Company Number: PHHY2009FR53007

PATIENT
  Age: 67 Year
  Sex: Female

DRUGS (8)
  1. TAREG [Suspect]
     Dosage: 160 MG, UNK
     Route: 048
     Dates: end: 20090917
  2. IXPRIM [Suspect]
     Indication: BACK PAIN
     Dosage: 3 DF, QD
     Route: 048
     Dates: end: 20090917
  3. RISPERIDONE [Suspect]
     Dosage: 2 MG, UNK
     Route: 048
     Dates: end: 20090917
  4. KESTINE [Suspect]
     Dosage: 10 MG, UNK
     Route: 048
     Dates: end: 20090917
  5. ALDALIX [Suspect]
     Dosage: 1 DF, UNK
     Route: 048
     Dates: end: 20090917
  6. TENORMIN [Concomitant]
     Dosage: 100 MG, UNK
     Route: 048
  7. SIMVASTATIN [Concomitant]
     Dosage: 100 MG, UNK
     Route: 048
  8. BI-PROFENID [Concomitant]
     Indication: BACK PAIN

REACTIONS (4)
  - AZOTAEMIA [None]
  - BLOOD CREATINE INCREASED [None]
  - HALLUCINATIONS, MIXED [None]
  - HYPERKALAEMIA [None]
